FAERS Safety Report 15466441 (Version 1)
Quarter: 2018Q4

REPORT INFORMATION
  Report Type: Spontaneous
  Country: GB (occurrence: GB)
  Receive Date: 20181004
  Receipt Date: 20181004
  Transmission Date: 20190204
  Serious: Yes (Hospitalization, Other)
  Sender: FDA-Public Use
  Company Number: GB-SUNOVION-2018SUN003824

PATIENT

DRUGS (6)
  1. LATUDA [Suspect]
     Active Substance: LURASIDONE HYDROCHLORIDE
     Dosage: 74 MG, UNK
     Route: 048
  2. ARIPIPRAZOLE. [Concomitant]
     Active Substance: ARIPIPRAZOLE
     Dosage: 25 MG, QD
  3. LATUDA [Suspect]
     Active Substance: LURASIDONE HYDROCHLORIDE
     Indication: PSYCHOTIC DISORDER
     Dosage: 18.5 MG, UNK
     Route: 048
  4. LATUDA [Suspect]
     Active Substance: LURASIDONE HYDROCHLORIDE
     Dosage: 148 MG, UNK
     Route: 048
  5. PROCYCLIDINE [Suspect]
     Active Substance: PROCYCLIDINE
     Indication: PSYCHOTIC DISORDER
     Dosage: UNKNOWN
  6. ARIPIPRAZOLE. [Concomitant]
     Active Substance: ARIPIPRAZOLE
     Indication: PSYCHOTIC DISORDER
     Dosage: 5 MG, QD

REACTIONS (5)
  - Mental impairment [Recovered/Resolved]
  - Off label use [Unknown]
  - Product dose omission [Unknown]
  - Hallucination, auditory [Recovered/Resolved]
  - Appetite disorder [Recovered/Resolved]
